FAERS Safety Report 9040616 (Version 1)
Quarter: 2013Q1

REPORT INFORMATION
  Report Type: Report from Study
  Country: US (occurrence: US)
  Receive Date: 20130129
  Receipt Date: 20130129
  Transmission Date: 20140127
  Serious: No
  Sender: FDA-Public Use
  Company Number: US-ABBOTT-12P-163-0898477-00

PATIENT
  Age: 74 Year
  Sex: Female

DRUGS (9)
  1. HUMIRA 40 MG/0.8 ML PEN [Suspect]
     Indication: RHEUMATOID ARTHRITIS
     Dates: start: 201110
  2. 21 UNKNOWN MEDICATIONS [Concomitant]
     Indication: HYPERTENSION
  3. 21 UNKNOWN MEDICATIONS [Concomitant]
     Indication: NEUROPATHY PERIPHERAL
  4. 21 UNKNOWN MEDICATIONS [Concomitant]
     Indication: PROPHYLAXIS AGAINST GASTROINTESTINAL ULCER
  5. 21 UNKNOWN MEDICATIONS [Concomitant]
     Indication: LIP INFECTION
  6. UNKNOWN MEDICATION [Concomitant]
     Indication: HYPERTENSION
  7. UNKNOWN NERVE MEDICATION [Concomitant]
     Indication: PRODUCT USED FOR UNKNOWN INDICATION
  8. UNKNOWN STOMACH MEDICATION [Concomitant]
     Indication: PRODUCT USED FOR UNKNOWN INDICATION
  9. UNKNOWN MEDICATION [Concomitant]
     Indication: LIP INFECTION

REACTIONS (1)
  - Lung disorder [Not Recovered/Not Resolved]
